FAERS Safety Report 5976819-2 (Version None)
Quarter: 2008Q4

REPORT INFORMATION
  Report Type: 
  Country: None (occurrence: None)
  Receive Date: 20081203
  Receipt Date: 20080215
  Transmission Date: 20090506
  Serious: No
  Sender: FDA-Public Use
  Company Number: US-AMGEN-KDL264350

PATIENT
  Sex: Female

DRUGS (6)
  1. ENBREL [Suspect]
     Indication: RHEUMATOID ARTHRITIS
     Route: 058
     Dates: start: 20071108
  2. METHOTREXATE [Concomitant]
     Dates: start: 20071108
  3. FOLIC ACID [Concomitant]
     Dates: start: 20071108
  4. ARTHROTEC [Concomitant]
     Dates: start: 20070601
  5. DARVOCET-N 100 [Concomitant]
  6. ULTRAM [Concomitant]

REACTIONS (7)
  - HAEMATOMA [None]
  - INJECTION SITE ERYTHEMA [None]
  - INJECTION SITE HAEMATOMA [None]
  - INJECTION SITE IRRITATION [None]
  - INJECTION SITE PRURITUS [None]
  - INJECTION SITE RASH [None]
  - INJECTION SITE SWELLING [None]
